FAERS Safety Report 16885441 (Version 1)
Quarter: 2019Q4

REPORT INFORMATION
  Report Type: Spontaneous
  Country: SE (occurrence: SE)
  Receive Date: 20191004
  Receipt Date: 20191004
  Transmission Date: 20200122
  Serious: Yes (Hospitalization)
  Sender: FDA-Public Use
  Company Number: SE-MYLANLABS-2019M1091994

PATIENT
  Age: 77 Year
  Sex: Male

DRUGS (6)
  1. HEMINEVRIN                         /00027501/ [Concomitant]
     Active Substance: CLOMETHIAZOLE
     Dosage: PRN (1-2 KAPSLAR V.B. H?GST 3 KAPSLAR/DYGN)
  2. MEMANTINE. [Suspect]
     Active Substance: MEMANTINE
     Indication: PRODUCT USED FOR UNKNOWN INDICATION
     Dosage: UNK
     Dates: end: 201903
  3. DIVISUN [Concomitant]
     Active Substance: CHOLECALCIFEROL
     Dosage: 800 INTERNATIONAL UNIT, QD
     Dates: start: 20180205
  4. AMOXICILLIN. [Concomitant]
     Active Substance: AMOXICILLIN
     Dosage: UNK
     Dates: start: 201903
  5. MADOPARK [Concomitant]
     Active Substance: BENSERAZIDE HYDROCHLORIDE\LEVODOPA
     Dosage: 6 DOSAGE FORM, QD
     Dates: start: 20181115
  6. MIRTAZAPINE. [Concomitant]
     Active Substance: MIRTAZAPINE
     Dosage: 2,UNK,QD (1/2 TABL. P? E.M. OCH 1 TABL. KV?LL)
     Dates: start: 20181218

REACTIONS (1)
  - Muscle twitching [Unknown]

NARRATIVE: CASE EVENT DATE: 201903
